FAERS Safety Report 25267664 (Version 1)
Quarter: 2025Q2

REPORT INFORMATION
  Report Type: Other
  Country: GB (occurrence: GB)
  Receive Date: 20250505
  Receipt Date: 20250505
  Transmission Date: 20250716
  Serious: Yes (Hospitalization, Other)
  Sender: Kanchan Healthcare
  Company Number: GB-Kanchan Healthcare INC-2176157

PATIENT
  Age: 71 Year
  Sex: Male

DRUGS (3)
  1. DEXAMETHASONE [Suspect]
     Active Substance: DEXAMETHASONE
     Indication: Plasma cell myeloma
     Dates: start: 202104
  2. CYCLOPHOSPHAMIDE [Suspect]
     Active Substance: CYCLOPHOSPHAMIDE
     Dates: start: 202104
  3. BORTEZOMIB [Suspect]
     Active Substance: BORTEZOMIB
     Dates: start: 202104

REACTIONS (2)
  - Weight decreased [Recovered/Resolved]
  - Product use in unapproved indication [Unknown]
